FAERS Safety Report 8023987-7 (Version None)
Quarter: 2012Q1

REPORT INFORMATION
  Report Type: 
  Country: None (occurrence: None)
  Receive Date: 20120105
  Receipt Date: 20100113
  Transmission Date: 20120608
  Serious: No
  Sender: FDA-Public Use
  Company Number: US-BAYER-201011497NA

PATIENT
  Sex: Female

DRUGS (2)
  1. ZITHROMAX [Concomitant]
     Indication: SINUSITIS
  2. MIRENA [Suspect]
     Dosage: 20 MCG/24HR, CONT
     Route: 015

REACTIONS (1)
  - NO ADVERSE EVENT [None]
